FAERS Safety Report 6838393-8 (Version None)
Quarter: 2010Q3

REPORT INFORMATION
  Report Type: 
  Country: None (occurrence: None)
  Receive Date: 20100713
  Receipt Date: 20070611
  Transmission Date: 20110219
  Serious: No
  Sender: FDA-Public Use
  Company Number: US-PFIZER INC-2007048709

PATIENT
  Sex: Female
  Weight: 70.5 kg

DRUGS (7)
  1. CHANTIX [Suspect]
     Indication: SMOKING CESSATION THERAPY
     Dates: start: 20070601
  2. BENADRYL [Suspect]
     Indication: RASH
     Dates: start: 20070601
  3. HYDROCODONE BITARTRATE [Concomitant]
  4. SOMA [Concomitant]
  5. XANAX [Concomitant]
  6. IBUPROFEN [Concomitant]
  7. VITAMINS [Concomitant]

REACTIONS (5)
  - ACNE [None]
  - DRUG INEFFECTIVE [None]
  - MEDICATION ERROR [None]
  - PRURITUS [None]
  - RASH [None]
